FAERS Safety Report 6095754-5 (Version None)
Quarter: 2009Q1

REPORT INFORMATION
  Report Type: 
  Country: None (occurrence: None)
  Receive Date: 20090227
  Receipt Date: 20080610
  Transmission Date: 20090719
  Serious: No
  Sender: FDA-Public Use
  Company Number: A0732229A

PATIENT
  Age: 43 Year
  Sex: Female

DRUGS (6)
  1. LAMICTAL [Suspect]
     Indication: MOOD SWINGS
     Dosage: 75MG PER DAY
     Route: 048
     Dates: start: 20080101, end: 20080526
  2. PROZAC [Concomitant]
  3. LYRICA [Concomitant]
  4. BENADRYL [Concomitant]
  5. HYDROXYZINE [Concomitant]
  6. PREDNISONE [Concomitant]

REACTIONS (3)
  - BACK PAIN [None]
  - PRURITUS [None]
  - RASH [None]
